FAERS Safety Report 21694688 (Version 1)
Quarter: 2022Q4

REPORT INFORMATION
  Report Type: Report from Study
  Country: CZ (occurrence: CZ)
  Receive Date: 20221207
  Receipt Date: 20221207
  Transmission Date: 20230113
  Serious: Yes (Death)
  Sender: FDA-Public Use
  Company Number: CZ-SAMSUNG BIOEPIS-SB-2022-30990

PATIENT
  Age: 61 Year
  Sex: Male

DRUGS (1)
  1. ETANERCEPT [Suspect]
     Active Substance: ETANERCEPT
     Indication: Rheumatoid arthritis
     Dosage: UNKNOWN
     Route: 065
     Dates: end: 20221118

REACTIONS (2)
  - Cerebrovascular accident [Fatal]
  - Endocarditis [Fatal]

NARRATIVE: CASE EVENT DATE: 20221026
